FAERS Safety Report 14266005 (Version 1)
Quarter: 2017Q4

REPORT INFORMATION
  Report Type: Report from Study
  Country: KR (occurrence: KR)
  Receive Date: 20171209
  Receipt Date: 20171209
  Transmission Date: 20180321
  Serious: Yes (Other)
  Sender: FDA-Public Use
  Company Number: KR-OTSUKA-BMS-2016-046017

PATIENT
  Age: 53 Year
  Sex: Male

DRUGS (6)
  1. LORAZEPAM. [Concomitant]
     Active Substance: LORAZEPAM
     Indication: ACUTE PSYCHOSIS
     Dosage: UNK, QD
     Route: 065
     Dates: start: 20110607, end: 20110619
  2. ARIPIPRAZOLE. [Suspect]
     Active Substance: ARIPIPRAZOLE
     Indication: SCHIZOPHRENIA
     Dosage: 10 MG, QD
     Route: 065
     Dates: start: 20110426, end: 20110619
  3. CODEINE [Concomitant]
     Active Substance: CODEINE
     Indication: BIPOLAR DISORDER
     Dosage: UNK, QD
     Route: 065
     Dates: start: 20110530, end: 20110613
  4. GABAPENTIN. [Concomitant]
     Active Substance: GABAPENTIN
     Indication: DEPRESSION
     Dosage: UNK
     Route: 065
     Dates: start: 20110516, end: 20110613
  5. MELOXICAM. [Concomitant]
     Active Substance: MELOXICAM
     Indication: PRODUCT USED FOR UNKNOWN INDICATION
     Dosage: UNK, QD
     Route: 065
     Dates: start: 20110516, end: 20110613
  6. DULOXETINE. [Concomitant]
     Active Substance: DULOXETINE
     Indication: DEPRESSION
     Dosage: UNK UNK, QD
     Route: 065
     Dates: start: 20110222, end: 20110619

REACTIONS (1)
  - Back pain [Unknown]

NARRATIVE: CASE EVENT DATE: 20110620
